FAERS Safety Report 6413585-0 (Version None)
Quarter: 2009Q4

REPORT INFORMATION
  Report Type: 
  Country: None (occurrence: None)
  Receive Date: 20091023
  Receipt Date: 20091023
  Transmission Date: 20100525
  Serious: Yes (Other)
  Sender: FDA-Public Use
  Company Number: None

PATIENT
  Sex: Female
  Weight: 107.9561 kg

DRUGS (1)
  1. GAMMAGARD LIQUID [Suspect]
     Indication: CHRONIC INFLAMMATORY DEMYELINATING POLYRADICULONEUROPATHY
     Dosage: 210 GRAMS MONTHLY IV DRIP
     Route: 041
     Dates: start: 20090916, end: 20091016

REACTIONS (3)
  - EXFOLIATIVE RASH [None]
  - RASH ERYTHEMATOUS [None]
  - SCAB [None]
